FAERS Safety Report 9578419 (Version 1)
Quarter: 2013Q4

REPORT INFORMATION
  Report Type: Spontaneous
  Country: US (occurrence: US)
  Receive Date: 20131001
  Receipt Date: 20131001
  Transmission Date: 20140711
  Serious: No
  Sender: FDA-Public Use
  Company Number: US-AMGEN-USASP2013013268

PATIENT
  Sex: Female

DRUGS (9)
  1. ENBREL [Suspect]
     Indication: RHEUMATOID ARTHRITIS
     Dosage: 25 MG, 2 TIMES/WK
     Route: 058
  2. TOPAMAX [Concomitant]
     Dosage: 50 MG, UNK
  3. LATUDA [Concomitant]
     Dosage: 80 MG, UNK
  4. LOVASTATIN [Concomitant]
     Dosage: 40 MG, UNK
  5. SYNTHROID [Concomitant]
     Dosage: 88 MUG, UNK
  6. LISINOPRIL [Concomitant]
     Dosage: 5 MG, UNK
  7. GABAPENTIN [Concomitant]
     Dosage: 300 MG, UNK
  8. ATIVAN [Concomitant]
     Dosage: 2 MG, UNK
  9. PRISTIQ [Concomitant]
     Dosage: 50 MG, UNK

REACTIONS (1)
  - Drug ineffective [Unknown]
